FAERS Safety Report 18533389 (Version 1)
Quarter: 2020Q4

REPORT INFORMATION
  Report Type: Spontaneous
  Country: US (occurrence: US)
  Receive Date: 20201123
  Receipt Date: 20201123
  Transmission Date: 20210114
  Serious: Yes (Other)
  Sender: FDA-Public Use
  Company Number: US-009507513-2011USA011443

PATIENT
  Age: 41 Year
  Sex: Male

DRUGS (6)
  1. SIROLIMUS. [Concomitant]
     Active Substance: SIROLIMUS
     Indication: IMMUNOSUPPRESSANT DRUG THERAPY
  2. PRINIVIL [Suspect]
     Active Substance: LISINOPRIL
     Indication: HYPERTENSION
     Dosage: 40 MG DAILY
     Route: 048
  3. PREDNISONE. [Concomitant]
     Active Substance: PREDNISONE
     Indication: IMMUNOSUPPRESSANT DRUG THERAPY
     Dosage: UNK
  4. CARVEDILOL. [Concomitant]
     Active Substance: CARVEDILOL
     Indication: HYPERTENSION
     Dosage: 25 MG TWO TIMES PER DAY
  5. MYCOPHENOLIC ACID. [Concomitant]
     Active Substance: MYCOPHENOLIC ACID
     Indication: IMMUNOSUPPRESSANT DRUG THERAPY
  6. AMLODIPINE [Concomitant]
     Active Substance: AMLODIPINE BESYLATE
     Indication: HYPERTENSION
     Dosage: 10 MG DAILY

REACTIONS (1)
  - Renal impairment [Unknown]
